FAERS Safety Report 6806767-7 (Version None)
Quarter: 2010Q2

REPORT INFORMATION
  Report Type: 
  Country: None (occurrence: None)
  Receive Date: 20100629
  Receipt Date: 20080630
  Transmission Date: 20101027
  Serious: No
  Sender: FDA-Public Use
  Company Number: US-PFIZER INC-2008037035

PATIENT
  Age: 34 Year
  Sex: Male
  Weight: 86.363 kg

DRUGS (1)
  1. XANAX XR [Suspect]
     Indication: ANXIETY

REACTIONS (2)
  - DRUG EFFECT DECREASED [None]
  - HEADACHE [None]
